FAERS Safety Report 22041787 (Version 2)
Quarter: 2023Q2

REPORT INFORMATION
  Report Type: Spontaneous
  Country: US (occurrence: US)
  Receive Date: 20230227
  Receipt Date: 20230526
  Transmission Date: 20230722
  Serious: Yes (Other)
  Sender: FDA-Public Use
  Company Number: US-PFIZER INC-PV202300036978

PATIENT
  Age: 60 Year
  Sex: Female

DRUGS (2)
  1. XELJANZ XR [Suspect]
     Active Substance: TOFACITINIB CITRATE
     Indication: Rheumatoid arthritis
     Dosage: 11 MG, ALTERNATE DAY (EVERY OTHER DAY)
     Route: 048
  2. METHOTREXATE SODIUM [Suspect]
     Active Substance: METHOTREXATE SODIUM
     Indication: Rheumatoid arthritis
     Dosage: UNK

REACTIONS (9)
  - Temperature intolerance [Recovering/Resolving]
  - Sensitivity to weather change [Recovering/Resolving]
  - Vitamin B12 deficiency [Recovering/Resolving]
  - Stress [Unknown]
  - Condition aggravated [Unknown]
  - Off label use [Unknown]
  - Musculoskeletal stiffness [Unknown]
  - Swelling [Unknown]
  - Illness [Unknown]
